FAERS Safety Report 6637844-1 (Version None)
Quarter: 2010Q1

REPORT INFORMATION
  Report Type: 
  Country: None (occurrence: None)
  Receive Date: 20100317
  Receipt Date: 20100304
  Transmission Date: 20100710
  Serious: Yes (Other)
  Sender: FDA-Public Use
  Company Number: PHHY2010BR13200

PATIENT
  Sex: Female

DRUGS (1)
  1. DIOCOMB SI [Suspect]
     Dosage: 160/20 MG

REACTIONS (3)
  - BLOOD PRESSURE INCREASED [None]
  - DRUG INEFFECTIVE [None]
  - MENOPAUSAL SYMPTOMS [None]
